FAERS Safety Report 20652875 (Version 2)
Quarter: 2022Q2

REPORT INFORMATION
  Report Type: Report from Study
  Country: US (occurrence: US)
  Receive Date: 20220330
  Receipt Date: 20220617
  Transmission Date: 20220720
  Serious: No
  Sender: FDA-Public Use
  Company Number: US-Ipsen Biopharmaceuticals, Inc.-2022-08181

PATIENT
  Age: 56 Year
  Sex: Male

DRUGS (2)
  1. SOMATULINE DEPOT [Suspect]
     Active Substance: LANREOTIDE ACETATE
     Indication: Acromegaly
     Dosage: 90 MG/0.3ML
     Route: 058
     Dates: start: 2015, end: 202104
  2. SOMATULINE DEPOT [Suspect]
     Active Substance: LANREOTIDE ACETATE
     Dosage: 90 MG/0.3ML
     Route: 058
     Dates: start: 202203

REACTIONS (6)
  - Abdominal discomfort [Recovering/Resolving]
  - Faeces soft [Recovering/Resolving]
  - Flatulence [Recovering/Resolving]
  - Faeces discoloured [Recovering/Resolving]
  - Discomfort [Recovering/Resolving]
  - Intentional dose omission [Unknown]

NARRATIVE: CASE EVENT DATE: 20220301
